FAERS Safety Report 12231732 (Version 3)
Quarter: 2016Q2

REPORT INFORMATION
  Report Type: Spontaneous
  Country: DE (occurrence: DE)
  Receive Date: 20160401
  Receipt Date: 20160418
  Transmission Date: 20160815
  Serious: No
  Sender: FDA-Public Use
  Company Number: DE-ABBVIE-16P-062-1574787-00

PATIENT
  Age: 79 Year
  Sex: Male
  Weight: 62 kg

DRUGS (9)
  1. SIMVABETA [Concomitant]
     Active Substance: SIMVASTATIN
     Indication: PRODUCT USED FOR UNKNOWN INDICATION
     Route: 065
  2. METOPROLOL SUCCINATE. [Concomitant]
     Active Substance: METOPROLOL SUCCINATE
     Indication: PRODUCT USED FOR UNKNOWN INDICATION
     Route: 065
  3. NOVORAPID [Suspect]
     Active Substance: INSULIN ASPART
     Indication: TYPE 1 DIABETES MELLITUS
     Route: 065
  4. PIRACETAM [Concomitant]
     Active Substance: PIRACETAM
     Indication: PRODUCT USED FOR UNKNOWN INDICATION
     Route: 065
  5. TESTOGEL [Suspect]
     Active Substance: TESTOSTERONE
     Route: 062
     Dates: start: 20160206, end: 20160225
  6. LANTUS [Suspect]
     Active Substance: INSULIN GLARGINE
     Indication: TYPE 1 DIABETES MELLITUS
     Route: 065
  7. PARACETAMOL W/TRAMADOL [Concomitant]
     Indication: ANALGESIC THERAPY
     Route: 065
  8. THYRONAJOD [Concomitant]
     Active Substance: LEVOTHYROXINE SODIUM\POTASSIUM IODIDE
     Indication: PRODUCT USED FOR UNKNOWN INDICATION
     Route: 065
  9. TESTOGEL [Suspect]
     Active Substance: TESTOSTERONE
     Indication: ANDROGEN DEFICIENCY
     Route: 062
     Dates: start: 2016, end: 201601

REACTIONS (7)
  - Fall [Recovering/Resolving]
  - Blood glucose fluctuation [Not Recovered/Not Resolved]
  - Headache [Recovering/Resolving]
  - Upper limb fracture [Unknown]
  - Contraindication to medical treatment [Unknown]
  - Hypoglycaemia [Not Recovered/Not Resolved]
  - Back pain [Recovering/Resolving]

NARRATIVE: CASE EVENT DATE: 20160217
